FAERS Safety Report 19811139 (Version 1)
Quarter: 2021Q3

REPORT INFORMATION
  Report Type: Spontaneous
  Country: US (occurrence: US)
  Receive Date: 20210910
  Receipt Date: 20210910
  Transmission Date: 20211014
  Serious: No
  Sender: FDA-Public Use
  Company Number: US-ROCHE-2701867

PATIENT
  Sex: Female
  Weight: 59.02 kg

DRUGS (6)
  1. IODINE. [Concomitant]
     Active Substance: IODINE
     Route: 065
     Dates: start: 20200602, end: 20200709
  2. PEGASYS [Suspect]
     Active Substance: PEGINTERFERON ALFA-2A
     Route: 058
     Dates: start: 20201022
  3. PEGASYS [Suspect]
     Active Substance: PEGINTERFERON ALFA-2A
     Indication: MYELOPROLIFERATIVE NEOPLASM
     Route: 058
     Dates: start: 20200709
  4. FISH OIL [Concomitant]
     Active Substance: FISH OIL
     Route: 065
     Dates: start: 20200602, end: 20200709
  5. ACETAMINOPHEN. [Concomitant]
     Active Substance: ACETAMINOPHEN
     Route: 048
     Dates: start: 20200602
  6. PEGASYS [Suspect]
     Active Substance: PEGINTERFERON ALFA-2A
     Dosage: INJECT 90 MCG SUBCUTANEOUS 180MCG/0.5ML
     Route: 058
     Dates: start: 20200930

REACTIONS (4)
  - Influenza like illness [Unknown]
  - Alopecia [Unknown]
  - Off label use [Unknown]
  - Intentional product use issue [Unknown]
